FAERS Safety Report 19829210 (Version 1)
Quarter: 2021Q3

REPORT INFORMATION
  Report Type: Spontaneous
  Country: FR (occurrence: FR)
  Receive Date: 20210914
  Receipt Date: 20210914
  Transmission Date: 20211014
  Serious: Yes (Hospitalization)
  Sender: FDA-Public Use
  Company Number: FR-MYLANLABS-2021M1060926

PATIENT
  Age: 86 Year
  Sex: Female

DRUGS (6)
  1. VANCOMYCIN [Suspect]
     Active Substance: VANCOMYCIN
     Indication: FEBRILE BONE MARROW APLASIA
     Dosage: UNK
     Route: 042
     Dates: start: 20210225, end: 20210317
  2. VENETOCLAX. [Suspect]
     Active Substance: VENETOCLAX
     Indication: ACUTE MYELOID LEUKAEMIA
     Dosage: UNK
     Route: 042
     Dates: start: 20210222
  3. CASPOFUNGIN [Suspect]
     Active Substance: CASPOFUNGIN
     Indication: FEBRILE BONE MARROW APLASIA
     Dosage: UNK
     Route: 042
     Dates: start: 20210225, end: 20210322
  4. VIDAZA [Suspect]
     Active Substance: AZACITIDINE
     Indication: ACUTE MYELOID LEUKAEMIA
     Dosage: UNK
     Route: 042
     Dates: start: 20210222
  5. AMITRIPTYLINE [Suspect]
     Active Substance: AMITRIPTYLINE
     Indication: NEURALGIA
     Dosage: UNK
     Route: 048
     Dates: start: 20210301
  6. IMIPENEM [Suspect]
     Active Substance: IMIPENEM
     Indication: FEBRILE BONE MARROW APLASIA
     Dosage: UNK
     Route: 042
     Dates: start: 20210227, end: 20210317

REACTIONS (1)
  - Rash maculo-papular [Recovered/Resolved]

NARRATIVE: CASE EVENT DATE: 20210315
